FAERS Safety Report 7152778 (Version 2)
Quarter: 2014Q4

REPORT INFORMATION
  Report Type: Spontaneous
  Country: NO (occurrence: NO)
  Receive Date: 20091019
  Receipt Date: 20141118
  Transmission Date: 20150529
  Serious: Yes (Hospitalization)
  Sender: FDA-Public Use
  Company Number: NO-MYLANLABS-2009S1017378

PATIENT

DRUGS (1)
  1. TOPIRAMATE. [Suspect]
     Active Substance: TOPIRAMATE
     Dosage: 50 MG,UNK
     Route: 063

REACTIONS (2)
  - Diarrhoea [Recovering/Resolving]
  - Exposure during breast feeding [Recovered/Resolved]
